FAERS Safety Report 7832378-0 (Version None)
Quarter: 2011Q4

REPORT INFORMATION
  Report Type: 
  Country: None (occurrence: None)
  Receive Date: 20111022
  Receipt Date: 20111005
  Transmission Date: 20120403
  Serious: Yes (Other)
  Sender: FDA-Public Use
  Company Number: US-BAYER-2011-052567

PATIENT
  Age: 45 Year
  Sex: Female
  Weight: 85.261 kg

DRUGS (3)
  1. YAZ [Suspect]
     Indication: PREMENSTRUAL SYNDROME
  2. YAZ [Suspect]
     Indication: ACNE
     Dosage: UNK
     Route: 048
     Dates: start: 20090101, end: 20100101
  3. LOESTRIN 1.5/30 [Concomitant]
     Dosage: UNK

REACTIONS (3)
  - PULMONARY EMBOLISM [None]
  - INJURY [None]
  - PAIN [None]
